FAERS Safety Report 25850485 (Version 1)
Quarter: 2025Q3

REPORT INFORMATION
  Report Type: Report from Study
  Country: US (occurrence: US)
  Receive Date: 20250926
  Receipt Date: 20250926
  Transmission Date: 20251021
  Serious: Yes (Other)
  Sender: ABBVIE
  Company Number: US-ABBVIE-6474983

PATIENT
  Age: 50 Year
  Sex: Male

DRUGS (1)
  1. SKYRIZI [Suspect]
     Active Substance: RISANKIZUMAB-RZAA
     Indication: Psoriasis
     Route: 058
     Dates: start: 20240504

REACTIONS (5)
  - Clavicle fracture [Unknown]
  - Road traffic accident [Unknown]
  - Rotator cuff syndrome [Unknown]
  - Foot fracture [Unknown]
  - Sternal fracture [Unknown]

NARRATIVE: CASE EVENT DATE: 20250801
